FAERS Safety Report 9068440 (Version 1)
Quarter: 2013Q1

REPORT INFORMATION
  Report Type: Spontaneous
  Country: US (occurrence: US)
  Receive Date: 20130128
  Receipt Date: 20130128
  Transmission Date: 20140127
  Serious: Yes (Death)
  Sender: FDA-Public Use
  Company Number: PHHY2013US007073

PATIENT
  Age: 56 Year
  Sex: Female

DRUGS (4)
  1. METOPROLOL [Suspect]
  2. DILTIAZEM [Suspect]
  3. LISINOPRIL [Suspect]
  4. PARACETAMOL SANDOZ [Suspect]

REACTIONS (1)
  - Completed suicide [Fatal]
